FAERS Safety Report 8212967-4 (Version None)
Quarter: 2012Q1

REPORT INFORMATION
  Report Type: 
  Country: None (occurrence: None)
  Receive Date: 20120315
  Receipt Date: 20120312
  Transmission Date: 20120608
  Serious: Yes (Other)
  Sender: FDA-Public Use
  Company Number: DE-PFIZER INC-2012064417

PATIENT
  Age: 69 Year
  Sex: Female

DRUGS (4)
  1. RAMIPRIL [Suspect]
     Dosage: 5 MG, UNK
     Route: 048
     Dates: start: 20100401
  2. CLOPIDOGREL [Suspect]
     Dosage: 75 MG, UNK
     Route: 048
     Dates: start: 20100501
  3. ENALAPRIL MALEATE [Suspect]
     Indication: HYPERTENSION
     Dosage: 20 MG, UNK
     Route: 048
     Dates: start: 20030201, end: 20100401
  4. ASPIRIN [Suspect]
     Dosage: 100 MG, UNK
     Route: 048
     Dates: start: 20100501

REACTIONS (1)
  - ANAEMIA [None]
